FAERS Safety Report 8640955 (Version 2)
Quarter: 2012Q4

REPORT INFORMATION
  Report Type: 
  Country: US (occurrence: US)
  Receive Date: 20120628
  Receipt Date: 20120914
  Transmission Date: 20130627
  Serious: Yes (Hospitalization)
  Sender: FDA-Public Use
  Company Number: US-UCBSA-060184

PATIENT
  Age: 47 Year
  Sex: Female
  Weight: 117.02 kg

DRUGS (10)
  1. CIMZIA [Suspect]
     Indication: CROHN^S DISEASE
     Route: 058
     Dates: start: 2012
  2. CIMZIA [Suspect]
     Indication: CROHN^S DISEASE
     Dosage: AT WEEK 0,2,4
     Route: 058
     Dates: start: 20120417, end: 2012
  3. FOLIC ACID [Concomitant]
     Dosage: NR
     Route: 048
  4. VITAMIN D [Concomitant]
     Dosage: NR
     Route: 048
  5. MVI [Concomitant]
     Dosage: NR
     Route: 048
  6. OMEPRAZOLE [Concomitant]
     Indication: GASTROOESOPHAGEAL REFLUX DISEASE
     Dosage: 40 MG PRN
     Route: 048
  7. LEVOXYL [Concomitant]
     Dosage: YEARS
     Route: 048
  8. GLIMEPIRIDE [Concomitant]
     Dosage: YEARS
     Route: 048
  9. BYETTA [Concomitant]
     Dosage: YEARS, 5 MCG/0.02 ML
     Route: 058
  10. NEXIUM [Concomitant]
     Dosage: YEARS
     Route: 048

REACTIONS (2)
  - Pancreatitis [Unknown]
  - Abdominal pain [Not Recovered/Not Resolved]
